FAERS Safety Report 9435746 (Version 1)
Quarter: 2013Q3

REPORT INFORMATION
  Report Type: Spontaneous
  Country: US (occurrence: None)
  Receive Date: 20130801
  Receipt Date: 20130801
  Transmission Date: 20140515
  Serious: No
  Sender: FDA-Public Use
  Company Number: None

PATIENT
  Age: 73 Year
  Sex: Male
  Weight: 82.7 kg

DRUGS (1)
  1. ATORVASTATIN [Suspect]
     Indication: HYPERLIPIDAEMIA
     Dosage: 20 MG  EVERY DAY  PO
     Route: 048
     Dates: start: 20130212, end: 20130731

REACTIONS (3)
  - Nausea [None]
  - Abdominal discomfort [None]
  - Vomiting [None]
